FAERS Safety Report 10037677 (Version 1)
Quarter: 2014Q1

REPORT INFORMATION
  Report Type: Spontaneous
  Country: US (occurrence: US)
  Receive Date: 20140326
  Receipt Date: 20140326
  Transmission Date: 20141002
  Serious: No
  Sender: FDA-Public Use
  Company Number: US-PFIZER INC-2014082438

PATIENT
  Sex: 0

DRUGS (1)
  1. REVATIO [Suspect]
     Indication: ERECTILE DYSFUNCTION
     Dosage: 20 MG, 3X/DAY

REACTIONS (1)
  - Drug ineffective for unapproved indication [Unknown]
